FAERS Safety Report 8815208 (Version 1)
Quarter: 2012Q4

REPORT INFORMATION
  Report Type: 
  Country: TW (occurrence: TW)
  Receive Date: 20120928
  Receipt Date: 20120928
  Transmission Date: 20130627
  Serious: Yes (Death)
  Sender: FDA-Public Use
  Company Number: TW-PFIZER INC-2012235643

PATIENT

DRUGS (1)
  1. CELEBREX [Suspect]
     Dosage: 200 mg, 1x/day
     Route: 048

REACTIONS (1)
  - Arrhythmia [Fatal]
